FAERS Safety Report 15385090 (Version 1)
Quarter: 2018Q3

REPORT INFORMATION
  Report Type: Report from Study
  Country: US (occurrence: US)
  Receive Date: 20180914
  Receipt Date: 20180914
  Transmission Date: 20181010
  Serious: Yes (Hospitalization, Other)
  Sender: FDA-Public Use
  Company Number: US-CLOVIS ONCOLOGY-CLO-2018-000973

PATIENT
  Age: 75 Year
  Sex: Female

DRUGS (2)
  1. RUBRACA [Suspect]
     Active Substance: RUCAPARIB CAMSYLATE
     Dosage: 200 MG BID
     Route: 048
     Dates: start: 20180817, end: 20180907
  2. RUBRACA [Suspect]
     Active Substance: RUCAPARIB CAMSYLATE
     Indication: OVARIAN CANCER
     Dosage: 600 MG, BID
     Route: 048
     Dates: start: 20180720, end: 201808

REACTIONS (4)
  - Pleural effusion [Unknown]
  - Blood count abnormal [Not Recovered/Not Resolved]
  - Asthenia [Unknown]
  - Cystitis [Unknown]

NARRATIVE: CASE EVENT DATE: 2018
